FAERS Safety Report 11356849 (Version 1)
Quarter: 2015Q3

REPORT INFORMATION
  Report Type: Spontaneous
  Country: US (occurrence: US)
  Receive Date: 20150803
  Receipt Date: 20150803
  Transmission Date: 20151125
  Serious: No
  Sender: FDA-Public Use
  Company Number: US-ELI_LILLY_AND_COMPANY-US201212002710

PATIENT
  Age: 9 Year
  Sex: Male
  Weight: 36.28 kg

DRUGS (3)
  1. STRATTERA [Suspect]
     Active Substance: ATOMOXETINE HYDROCHLORIDE
     Indication: ATTENTION DEFICIT/HYPERACTIVITY DISORDER
     Dosage: 25 MG, QD
     Route: 048
     Dates: start: 201208
  2. STRATTERA [Suspect]
     Active Substance: ATOMOXETINE HYDROCHLORIDE
     Dosage: 40 MG, QD
     Route: 048
     Dates: start: 20120816, end: 20121004
  3. STRATTERA [Suspect]
     Active Substance: ATOMOXETINE HYDROCHLORIDE
     Dosage: 25 MG, QD
     Route: 048
     Dates: start: 201211

REACTIONS (6)
  - Insomnia [Recovered/Resolved]
  - Anger [Recovered/Resolved]
  - Adverse reaction [Recovered/Resolved]
  - Migraine [Recovered/Resolved]
  - Crying [Recovered/Resolved]
  - Aggression [Recovered/Resolved]
